FAERS Safety Report 6925799-1 (Version None)
Quarter: 2010Q3

REPORT INFORMATION
  Report Type: 
  Country: None (occurrence: None)
  Receive Date: 20100813
  Receipt Date: 20100813
  Transmission Date: 20110219
  Serious: Yes (Life-Threatening, Other)
  Sender: FDA-Public Use
  Company Number: None

PATIENT
  Age: 21 Year
  Sex: Female
  Weight: 53.0709 kg

DRUGS (2)
  1. CAMEL R.J. REYNOLDS [Suspect]
     Indication: ACCIDENTAL EXPOSURE
     Dosage: SECOND HAND ACCIDENTAL INHAL
     Route: 055
  2. MARLBORO PHILLIP MORRIS [Suspect]
     Indication: ACCIDENTAL EXPOSURE
     Dosage: SECOND HAND ACCIDENTAL INHAL
     Route: 055

REACTIONS (11)
  - ACCIDENTAL EXPOSURE [None]
  - ASTHMA [None]
  - CHOKING [None]
  - DIZZINESS [None]
  - HEADACHE [None]
  - HEARING IMPAIRED [None]
  - LARYNGOSPASM [None]
  - LOSS OF CONSCIOUSNESS [None]
  - PANIC DISORDER [None]
  - TOBACCO POISONING [None]
  - VISUAL ACUITY REDUCED [None]
